FAERS Safety Report 10678621 (Version 2)
Quarter: 2014Q4

REPORT INFORMATION
  Report Type: Spontaneous
  Country: US (occurrence: US)
  Receive Date: 20141229
  Receipt Date: 20141229
  Transmission Date: 20150529
  Serious: No
  Sender: FDA-Public Use
  Company Number: US-PFIZER INC-2014272306

PATIENT
  Age: 61 Year
  Sex: Male
  Weight: 68 kg

DRUGS (9)
  1. LANOXIN [Concomitant]
     Active Substance: DIGOXIN
     Dosage: UNK
     Dates: start: 1997
  2. ATENOLOL. [Suspect]
     Active Substance: ATENOLOL
     Dosage: 6.25 MG, UNK
     Dates: start: 2006, end: 20140924
  3. WARFARIN [Suspect]
     Active Substance: WARFARIN
     Indication: ATRIAL FIBRILLATION
     Dosage: 5 UNK, UNK
     Dates: start: 199707
  4. FINASTERIDE. [Concomitant]
     Active Substance: FINASTERIDE
     Indication: PROSTATOMEGALY
     Dosage: UNK
     Dates: start: 201405
  5. WARFARIN [Suspect]
     Active Substance: WARFARIN
     Indication: CARDIAC VALVE DISEASE
     Dosage: 4 MG, DAILY
     Route: 048
     Dates: start: 199707
  6. DIGOXIN. [Concomitant]
     Active Substance: DIGOXIN
     Dosage: 0.125 MG, UNK
     Dates: start: 1997
  7. ATENOLOL. [Suspect]
     Active Substance: ATENOLOL
     Indication: CARDIAC VALVE DISEASE
     Dosage: 25 MG, DAILY
     Route: 048
     Dates: start: 199707, end: 2002
  8. ATENOLOL. [Suspect]
     Active Substance: ATENOLOL
     Indication: ATRIAL FIBRILLATION
     Dosage: 12.5 MG, UNK
     Dates: start: 2002, end: 2006
  9. FLOMAX [Suspect]
     Active Substance: TAMSULOSIN HYDROCHLORIDE
     Indication: PROSTATOMEGALY
     Dosage: UNK
     Route: 048
     Dates: start: 201308

REACTIONS (4)
  - Asthenia [Recovering/Resolving]
  - Balance disorder [Unknown]
  - Hypotension [Unknown]
  - Fatigue [Recovering/Resolving]

NARRATIVE: CASE EVENT DATE: 2002
